FAERS Safety Report 7412268-8 (Version None)
Quarter: 2011Q2

REPORT INFORMATION
  Report Type: 
  Country: None (occurrence: None)
  Receive Date: 20110413
  Receipt Date: 20110404
  Transmission Date: 20111010
  Serious: Yes (Hospitalization)
  Sender: FDA-Public Use
  Company Number: US-ASTRAZENECA-2011SE14069

PATIENT
  Age: 51 Year
  Sex: Female
  Weight: 81.2 kg

DRUGS (7)
  1. BUPROPION HYDROCHLORIDE [Concomitant]
     Indication: ANXIETY
  2. BUPROPION HYDROCHLORIDE [Concomitant]
  3. XANAX XR [Concomitant]
     Route: 048
  4. NORCO [Concomitant]
     Dosage: 7.5-325 MG, 1 TAB EVERY SIX HOURS, AS NEEDED.
     Route: 048
  5. OPANA [Concomitant]
     Route: 048
  6. SEROQUEL [Suspect]
     Indication: BIPOLAR DISORDER
     Route: 048
     Dates: end: 20110224
  7. BUPROPION HCL [Concomitant]
     Route: 048

REACTIONS (4)
  - BIPOLAR DISORDER [None]
  - DRUG DOSE OMISSION [None]
  - DEPRESSION [None]
  - SUICIDAL IDEATION [None]
